FAERS Safety Report 9300567 (Version 1)
Quarter: 2013Q2

REPORT INFORMATION
  Report Type: Spontaneous
  Country: US (occurrence: None)
  Receive Date: 20130520
  Receipt Date: 20130520
  Transmission Date: 20140414
  Serious: Yes (Death)
  Sender: FDA-Public Use
  Company Number: None

PATIENT
  Age: 20 Year
  Sex: Female
  Weight: 84 kg

DRUGS (1)
  1. YASMIN 3MG/0.03MG BAYER [Suspect]
     Indication: CONTRACEPTION
     Dosage: 1 TAB DAILY PO
     Dates: start: 20120719, end: 20130420

REACTIONS (23)
  - Pallor [None]
  - Vomiting [None]
  - Abdominal pain [None]
  - Faecal incontinence [None]
  - Nausea [None]
  - Malaise [None]
  - Pain in extremity [None]
  - Asthenia [None]
  - Emotional distress [None]
  - Cold sweat [None]
  - Anxiety [None]
  - Peripheral pulse decreased [None]
  - Gastroenteritis [None]
  - Food poisoning [None]
  - Electrolyte imbalance [None]
  - Viral infection [None]
  - Sinus tachycardia [None]
  - Electrocardiogram ST segment depression [None]
  - Electrocardiogram ST segment elevation [None]
  - Ruptured ectopic pregnancy [None]
  - Cardiogenic shock [None]
  - Cardiac arrest [None]
  - Pulmonary embolism [None]
